FAERS Safety Report 6009983-X (Version None)
Quarter: 2008Q4

REPORT INFORMATION
  Report Type: 
  Country: None (occurrence: None)
  Receive Date: 20081216
  Receipt Date: 20081208
  Transmission Date: 20090506
  Serious: Yes (Other)
  Sender: FDA-Public Use
  Company Number: LTI2008A00327

PATIENT
  Age: 58 Year
  Sex: Male

DRUGS (3)
  1. ACTOS [Suspect]
     Indication: TYPE 2 DIABETES MELLITUS
     Dosage: 30 MG (30 MG, 1 IN 1 D), ORAL
     Route: 048
     Dates: start: 20050415, end: 20081022
  2. GLUCOPHAGE (METPORMIN) [Concomitant]
  3. GLYBURIDE [Concomitant]

REACTIONS (1)
  - PANCREATITIS ACUTE [None]
